FAERS Safety Report 23134767 (Version 1)
Quarter: 2023Q4

REPORT INFORMATION
  Report Type: Spontaneous
  Country: US (occurrence: US)
  Receive Date: 20231101
  Receipt Date: 20231101
  Transmission Date: 20240110
  Serious: No
  Sender: FDA-Public Use
  Company Number: US-OPELLA-2023OHG010856

PATIENT
  Age: 8 Year
  Sex: Male

DRUGS (1)
  1. ICY HOT KIDS PAIN RELIEF ROLL-ON [Suspect]
     Active Substance: MENTHOL
     Indication: Back pain
     Route: 065

REACTIONS (1)
  - Application site irritation [Unknown]
